FAERS Safety Report 19744727 (Version 5)
Quarter: 2022Q1

REPORT INFORMATION
  Report Type: Report from Study
  Country: IT (occurrence: IT)
  Receive Date: 20210825
  Receipt Date: 20220223
  Transmission Date: 20220423
  Serious: Yes (Other)
  Sender: FDA-Public Use
  Company Number: IT-ROCHE-2816936

PATIENT
  Age: 62 Year
  Sex: Male

DRUGS (9)
  1. VINCRISTINE SULFATE [Suspect]
     Active Substance: VINCRISTINE SULFATE
     Indication: Follicular lymphoma
     Dosage: 1 MG CYCLIC (28 DAYS BETWEEN C1 AND C2, FROM C2 TO C6 EVERY 21 DAYS)
     Route: 065
     Dates: start: 20200806
  2. DOXORUBICIN HYDROCHLORIDE [Suspect]
     Active Substance: DOXORUBICIN HYDROCHLORIDE
     Indication: Follicular lymphoma
     Dosage: 89 MG (28 DAYS BETWEEN C1 AND C2, FROM C2 TO C6 EVERY 21 DAYS)
     Route: 065
     Dates: start: 20200806
  3. CYCLOPHOSPHAMIDE [Suspect]
     Active Substance: CYCLOPHOSPHAMIDE
     Indication: Follicular lymphoma
     Dosage: 1340 MG (28 DAYS BETWEEN C1 AND C2, FROM C2 TO C6 EVERY 21 DAYS)
     Route: 065
     Dates: start: 20200806
  4. OBINUTUZUMAB [Suspect]
     Active Substance: OBINUTUZUMAB
     Indication: Follicular lymphoma
     Dosage: UNK
     Route: 042
     Dates: start: 20200806
  5. OBINUTUZUMAB [Suspect]
     Active Substance: OBINUTUZUMAB
     Dosage: UNK
     Route: 065
  6. OBINUTUZUMAB [Suspect]
     Active Substance: OBINUTUZUMAB
     Dosage: 1000 MG, EVERY 3 WEEKS
     Route: 042
     Dates: start: 20200813
  7. PREDNISONE [Suspect]
     Active Substance: PREDNISONE
     Indication: Follicular lymphoma
     Dosage: 125 MG (28 DAYS BETWEEN C1 AND C2, FROM C2 TO C6 EVERY 21 DAYS)
     Dates: start: 20200806
  8. PREDNISONE [Suspect]
     Active Substance: PREDNISONE
     Dosage: 50 MG
     Dates: start: 20200807, end: 20200808
  9. PREDNISONE [Suspect]
     Active Substance: PREDNISONE
     Dosage: 25 MG
     Route: 065
     Dates: start: 20200809, end: 20200810

REACTIONS (4)
  - Neutropenia [Recovered/Resolved]
  - Neutropenia [Recovered/Resolved]
  - Neutropenia [Recovered/Resolved]
  - Anaemia [Recovered/Resolved]

NARRATIVE: CASE EVENT DATE: 20201009
